FAERS Safety Report 4389594-2 (Version None)
Quarter: 2004Q2

REPORT INFORMATION
  Report Type: 
  Country: None (occurrence: None)
  Receive Date: 20040629
  Receipt Date: 20040219
  Transmission Date: 20050107
  Serious: Yes (Hospitalization)
  Sender: FDA-Public Use
  Company Number: US-JNJFOC-20040204647

PATIENT
  Age: 42 Year
  Sex: Male

DRUGS (3)
  1. DURAGESIC [Suspect]
     Indication: PAIN
     Dosage: 75 UG/HR, 1 IN 72 HOUR, TRANSDERMAL
     Route: 062
     Dates: start: 20030701
  2. WELLBUTRIN [Concomitant]
  3. CLONAZEPAM [Concomitant]

REACTIONS (1)
  - CONSTIPATION [None]
